FAERS Safety Report 12673036 (Version 1)
Quarter: 2016Q3

REPORT INFORMATION
  Report Type: Report from Study
  Country: BR (occurrence: BR)
  Receive Date: 20160822
  Receipt Date: 20160822
  Transmission Date: 20161109
  Serious: Yes (Other)
  Sender: FDA-Public Use
  Company Number: BR-ABBVIE-16K-020-1700980-00

PATIENT
  Sex: Female
  Weight: 86 kg

DRUGS (7)
  1. VELIJA [Concomitant]
     Active Substance: DULOXETINE HYDROCHLORIDE
     Indication: ANXIOLYTIC THERAPY
     Route: 048
  2. BROMAZEPAM [Concomitant]
     Active Substance: BROMAZEPAM
     Indication: SLEEP DISORDER THERAPY
     Route: 048
  3. VINOVIT [Concomitant]
     Route: 048
     Dates: start: 201607
  4. OMEPRAZOLE. [Concomitant]
     Active Substance: OMEPRAZOLE
     Indication: GASTRIC DISORDER
     Route: 048
  5. HUMIRA [Suspect]
     Active Substance: ADALIMUMAB
     Indication: ANKYLOSING SPONDYLITIS
     Route: 058
     Dates: start: 20140926
  6. VINOVIT [Concomitant]
     Indication: PAIN
     Route: 048
     Dates: start: 2015
  7. CARBAMAZEPINE. [Concomitant]
     Active Substance: CARBAMAZEPINE
     Indication: PRODUCT USED FOR UNKNOWN INDICATION
     Route: 048

REACTIONS (12)
  - Mucous stools [Recovering/Resolving]
  - Erythema [Recovering/Resolving]
  - Ankylosing spondylitis [Unknown]
  - Haematochezia [Recovering/Resolving]
  - Pain [Unknown]
  - Vomiting [Recovering/Resolving]
  - Irritability [Recovering/Resolving]
  - Inappropriate schedule of drug administration [Unknown]
  - Nervousness [Not Recovered/Not Resolved]
  - Malaise [Unknown]
  - Arthralgia [Not Recovered/Not Resolved]
  - Joint swelling [Not Recovered/Not Resolved]

NARRATIVE: CASE EVENT DATE: 2015
